FAERS Safety Report 6392321-0 (Version None)
Quarter: 2009Q4

REPORT INFORMATION
  Report Type: 
  Country: None (occurrence: None)
  Receive Date: 20091007
  Receipt Date: 20090924
  Transmission Date: 20100525
  Serious: Yes (Other)
  Sender: FDA-Public Use
  Company Number: PHEH2008US04922

PATIENT
  Sex: Female

DRUGS (3)
  1. ZOMETA [Suspect]
     Dosage: UNK
     Dates: start: 20020101, end: 20050101
  2. RADIATION THERAPY [Concomitant]
     Dosage: UNK
     Dates: start: 20020101
  3. ARIMIDEX [Concomitant]
     Dosage: UNK
     Dates: start: 20020101

REACTIONS (25)
  - ANHEDONIA [None]
  - ANXIETY [None]
  - BACK PAIN [None]
  - CHOLECYSTECTOMY [None]
  - DEBRIDEMENT [None]
  - EXOSTOSIS [None]
  - FALL [None]
  - GENERAL PHYSICAL HEALTH DETERIORATION [None]
  - GRIP STRENGTH DECREASED [None]
  - HEADACHE [None]
  - HOT FLUSH [None]
  - INTERVERTEBRAL DISC DEGENERATION [None]
  - LOOSE TOOTH [None]
  - NAUSEA [None]
  - OSTEOARTHRITIS [None]
  - OSTEONECROSIS [None]
  - PAIN [None]
  - POST-TRAUMATIC PAIN [None]
  - SKELETAL INJURY [None]
  - SMEAR CERVIX ABNORMAL [None]
  - STRESS [None]
  - TIBIA FRACTURE [None]
  - TOOTH LOSS [None]
  - VOMITING [None]
  - WEIGHT INCREASED [None]
